FAERS Safety Report 21498559 (Version 11)
Quarter: 2023Q1

REPORT INFORMATION
  Report Type: Report from Study
  Country: BR (occurrence: BR)
  Receive Date: 20221024
  Receipt Date: 20230320
  Transmission Date: 20230417
  Serious: Yes (Death, Life-Threatening, Hospitalization)
  Sender: FDA-Public Use
  Company Number: BR-GLAXOSMITHKLINE-BR2022150703

PATIENT

DRUGS (1)
  1. BELANTAMAB MAFODOTIN [Suspect]
     Active Substance: BELANTAMAB MAFODOTIN
     Indication: Plasma cell myeloma
     Dosage: 2.5 MG/KG, Q3W
     Route: 042
     Dates: start: 20220916, end: 20220916

REACTIONS (5)
  - Post procedural haemorrhage [Fatal]
  - Pulmonary sepsis [Recovered/Resolved]
  - Febrile neutropenia [Recovered/Resolved]
  - Haemoptysis [Not Recovered/Not Resolved]
  - Acute kidney injury [Not Recovered/Not Resolved]

NARRATIVE: CASE EVENT DATE: 20221018
